FAERS Safety Report 10149691 (Version 1)
Quarter: 2014Q2

REPORT INFORMATION
  Report Type: Spontaneous
  Country: GB (occurrence: GB)
  Receive Date: 20140502
  Receipt Date: 20140502
  Transmission Date: 20141212
  Serious: Yes (Other)
  Sender: FDA-Public Use
  Company Number: GB-B.I. PHARMACEUTICALS,INC./RIDGEFIELD-2014-BI-18738UK

PATIENT
  Age: 60 Year
  Sex: Male
  Weight: 108.4 kg

DRUGS (9)
  1. TRAJENTA [Suspect]
     Indication: HYPERGLYCAEMIA
     Route: 048
     Dates: start: 20140401, end: 20140407
  2. AMLODIPINE [Concomitant]
     Route: 065
  3. ATORVASTATIN [Concomitant]
     Route: 065
  4. BENDROFLUMETHIAZIDE [Concomitant]
     Route: 065
  5. CETIRIZINE [Concomitant]
     Route: 065
  6. GLICLAZIDE [Concomitant]
     Route: 065
  7. LISINOPRIL [Concomitant]
     Route: 065
  8. LOSARTAN [Concomitant]
     Route: 065
  9. METFORMIN [Concomitant]
     Dosage: 1500 MG
     Route: 065

REACTIONS (6)
  - Cough [Recovered/Resolved]
  - Pruritus [Recovered/Resolved]
  - Abdominal pain upper [Recovered/Resolved]
  - Chromaturia [Recovered/Resolved]
  - Vomiting [Recovered/Resolved]
  - Ocular icterus [Recovered/Resolved]
